FAERS Safety Report 5567878-X (Version None)
Quarter: 2007Q4

REPORT INFORMATION
  Report Type: 
  Country: None (occurrence: None)
  Receive Date: 20071218
  Receipt Date: 20071218
  Transmission Date: 20080405
  Serious: Yes (Other)
  Sender: FDA-Public Use
  Company Number: 2007SP024768

PATIENT
  Age: 18 Year
  Sex: Female

DRUGS (1)
  1. CORICIDIN [Suspect]
     Indication: DRUG USE FOR UNKNOWN INDICATION
     Dosage: 10 DF; PO
     Route: 048

REACTIONS (2)
  - HALLUCINATION [None]
  - VOMITING [None]
